FAERS Safety Report 8154447-0 (Version None)
Quarter: 2012Q1

REPORT INFORMATION
  Report Type: 
  Country: None (occurrence: None)
  Receive Date: 20120203
  Receipt Date: 20120125
  Transmission Date: 20120608
  Serious: Yes (Other)
  Sender: FDA-Public Use
  Company Number: 2012030952

PATIENT
  Age: 58 Year
  Sex: Female
  Weight: 83.9154 kg

DRUGS (26)
  1. HIZENTRA [Suspect]
  2. TURMERIC (CURCUMA LONGA RHIZOME) [Concomitant]
  3. PRO-AIR (SALBUTAMOL SULFATE) [Concomitant]
  4. HYDROCODONE BITARTRATE [Concomitant]
  5. SYNTHROID [Concomitant]
  6. VITAMIN D [Concomitant]
  7. DIAZEPAM [Concomitant]
  8. SINGULAIR [Concomitant]
  9. AMBIEN [Concomitant]
  10. VOLTAREN [Concomitant]
  11. CIPRO [Concomitant]
  12. ACIDOPHILUS (LACTOBACILLUS ACIODPHILUS) [Concomitant]
  13. CYMBALTA [Concomitant]
  14. MUPIROCIN [Concomitant]
  15. GABAPENTIN [Concomitant]
  16. HIZENTRA [Suspect]
     Indication: IMMUNODEFICIENCY COMMON VARIABLE
     Dosage: 10 G 1X.WEEK, 50 ML 3 SITES OVER 1-2 HOURS SUBCUTANEOUS, SUBCUTANEOUS
     Route: 058
     Dates: start: 20120110, end: 20120110
  17. CLOBETASOL (CLOBAETASOL) [Concomitant]
  18. CRESTOR [Concomitant]
  19. TRAZODONE HCL [Concomitant]
  20. IBUPROFEN (ADVIL) [Concomitant]
  21. SPIRIVA [Concomitant]
  22. TRETINOIN [Concomitant]
  23. FISH OIL (FISH OIL) [Concomitant]
  24. ACIPHEX [Concomitant]
  25. ESTER-C (CALCIUM ASCORBATE) [Concomitant]
  26. FLONASE [Concomitant]

REACTIONS (1)
  - URINARY TRACT INFECTION [None]
